FAERS Safety Report 6549360-6 (Version None)
Quarter: 2010Q1

REPORT INFORMATION
  Report Type: 
  Country: None (occurrence: None)
  Receive Date: 20100125
  Receipt Date: 20100114
  Transmission Date: 20100710
  Serious: Yes (Hospitalization, Other)
  Sender: FDA-Public Use
  Company Number: PHHY2009GB11333

PATIENT
  Sex: Male
  Weight: 84 kg

DRUGS (4)
  1. CLOZARIL [Suspect]
     Indication: SCHIZOPHRENIA
     Dosage: 625 MG, UNK
     Route: 048
     Dates: start: 19940301
  2. METFORMIN [Concomitant]
     Indication: DIABETES MELLITUS
     Dosage: 1500 MG
     Route: 048
  3. ATENOLOL [Concomitant]
     Indication: HYPERTENSION
     Dosage: 25 MG
     Route: 048
  4. ENALAPRIL MALEATE [Concomitant]
     Indication: HYPERTENSION
     Dosage: 100 - 200 MG, UNK

REACTIONS (4)
  - LEUKOPENIA [None]
  - NEUTROPHIL COUNT DECREASED [None]
  - NON-HODGKIN'S LYMPHOMA [None]
  - PLATELET COUNT INCREASED [None]
